FAERS Safety Report 17850654 (Version 1)
Quarter: 2020Q2

REPORT INFORMATION
  Report Type: Spontaneous
  Country: CO (occurrence: CO)
  Receive Date: 20200602
  Receipt Date: 20200602
  Transmission Date: 20200714
  Serious: Yes (Death)
  Sender: FDA-Public Use
  Company Number: CO-PFIZER INC-2019453872

PATIENT
  Age: 51 Year
  Sex: Female

DRUGS (1)
  1. REAMPLA [Suspect]
     Active Substance: PALBOCICLIB
     Indication: BREAST CANCER METASTATIC
     Dosage: 125 MG, CYCLIC (21 DAYS ONCE DAILY) AT NIGHT
     Route: 048
     Dates: start: 20191016

REACTIONS (14)
  - Death [Fatal]
  - Discomfort [Unknown]
  - Dyspnoea [Not Recovered/Not Resolved]
  - Fatigue [Unknown]
  - Pain [Unknown]
  - Musculoskeletal pain [Not Recovered/Not Resolved]
  - Malaise [Unknown]
  - Headache [Not Recovered/Not Resolved]
  - Bone pain [Not Recovered/Not Resolved]
  - Pain in extremity [Not Recovered/Not Resolved]
  - Feeling abnormal [Unknown]
  - Gait inability [Unknown]
  - Mobility decreased [Unknown]
  - Arthralgia [Not Recovered/Not Resolved]

NARRATIVE: CASE EVENT DATE: 2019
